FAERS Safety Report 5022709-1 (Version None)
Quarter: 2006Q2

REPORT INFORMATION
  Report Type: 
  Country: None (occurrence: None)
  Receive Date: 20060605
  Receipt Date: 20060519
  Transmission Date: 20061013
  Serious: Yes (Life-Threatening, Hospitalization, Other)
  Sender: FDA-Public Use
  Company Number: DE200605004388

PATIENT
  Age: 66 Year
  Sex: Male

DRUGS (12)
  1. ALIMTA [Suspect]
     Indication: PLEURAL MESOTHELIOMA
  2. CYNT (MOXONIDINE) [Concomitant]
  3. CYANOCOBALAMIN [Concomitant]
  4. LAFOL (FOLIC ACID) [Concomitant]
  5. DIOVAN [Concomitant]
  6. INNOHEP [Concomitant]
  7. METOPROLOL SUCCINATE [Concomitant]
  8. ESOMEPRAZOLE (ESOMEPRAZOLE) [Concomitant]
  9. TORSEMIDE [Concomitant]
  10. TRAMADOL HCL [Concomitant]
  11. SEREVENT [Concomitant]
  12. SPIRIVAL (TIOTROPIUM BROMIDE) [Concomitant]

REACTIONS (18)
  - BREATH SOUNDS ABNORMAL [None]
  - DEHYDRATION [None]
  - DIABETES MELLITUS [None]
  - DIARRHOEA [None]
  - DRUG TOXICITY [None]
  - EPISTAXIS [None]
  - FAECES DISCOLOURED [None]
  - GASTROINTESTINAL HAEMORRHAGE [None]
  - HAEMATOMA [None]
  - HYPOGLYCAEMIC COMA [None]
  - HYPOPROTEINAEMIA [None]
  - INFLAMMATION [None]
  - LOSS OF CONSCIOUSNESS [None]
  - MOUTH HAEMORRHAGE [None]
  - NEUTROPENIA [None]
  - OEDEMA PERIPHERAL [None]
  - PANCYTOPENIA [None]
  - PNEUMONIA [None]
